FAERS Safety Report 7376317-8 (Version None)
Quarter: 2011Q1

REPORT INFORMATION
  Report Type: 
  Country: None (occurrence: None)
  Receive Date: 20110325
  Receipt Date: 20110223
  Transmission Date: 20110831
  Serious: Yes (Other)
  Sender: FDA-Public Use
  Company Number: US-GENZYME-FLUD-1000575

PATIENT
  Age: 69 Year
  Sex: Male

DRUGS (6)
  1. FLUDARA [Suspect]
     Dosage: UNK
     Route: 065
  2. FLUDARA [Suspect]
     Dosage: UNK
     Route: 065
  3. FLUDARA [Suspect]
     Dosage: UNK
     Route: 065
  4. FLUDARA [Suspect]
     Indication: CHRONIC LYMPHOCYTIC LEUKAEMIA
     Dosage: UNK
     Route: 065
  5. FLUDARA [Suspect]
     Dosage: UNK
     Route: 065
  6. FLUDARA [Suspect]
     Dosage: UNK
     Route: 065

REACTIONS (15)
  - PHARYNGEAL MASS [None]
  - MALNUTRITION [None]
  - MULTI-ORGAN FAILURE [None]
  - METABOLIC ACIDOSIS [None]
  - RENAL FAILURE [None]
  - LYMPHOPROLIFERATIVE DISORDER [None]
  - HODGKIN'S DISEASE [None]
  - SPLENOMEGALY [None]
  - MUCOSAL INFLAMMATION [None]
  - PNEUMONIA [None]
  - PLASMABLASTIC LYMPHOMA [None]
  - LYMPHADENOPATHY [None]
  - PANCYTOPENIA [None]
  - EPSTEIN-BARR VIRUS INFECTION [None]
  - MENTAL STATUS CHANGES [None]
